FAERS Safety Report 12491394 (Version 3)
Quarter: 2016Q3

REPORT INFORMATION
  Report Type: Spontaneous
  Country: US (occurrence: US)
  Receive Date: 20160623
  Receipt Date: 20160726
  Transmission Date: 20161109
  Serious: Yes (Death, Hospitalization, Other)
  Sender: FDA-Public Use
  Company Number: US-009507513-1606USA009371

PATIENT
  Age: 36 Year
  Sex: Female

DRUGS (1)
  1. KEYTRUDA [Suspect]
     Active Substance: PEMBROLIZUMAB
     Indication: COLON CANCER METASTATIC
     Dosage: 113 MG, Q3W
     Route: 042
     Dates: start: 20160526

REACTIONS (3)
  - Death [Fatal]
  - Product use issue [Unknown]
  - Adverse event [Unknown]

NARRATIVE: CASE EVENT DATE: 2016
